FAERS Safety Report 9424160 (Version 1)
Quarter: 2013Q3

REPORT INFORMATION
  Report Type: Report from Study
  Country: AR (occurrence: AR)
  Receive Date: 20130729
  Receipt Date: 20130729
  Transmission Date: 20140515
  Serious: Yes (Other)
  Sender: FDA-Public Use
  Company Number: PHHY2013AR079810

PATIENT
  Sex: Male

DRUGS (2)
  1. STALEVO [Suspect]
     Dosage: 100 UKN, UNK
     Route: 048
  2. EXELON PATCH [Suspect]
     Dosage: UNK UKN, UNK
     Route: 062

REACTIONS (3)
  - Abasia [Unknown]
  - Dysstasia [Unknown]
  - Bedridden [Unknown]
